FAERS Safety Report 4864568-3 (Version None)
Quarter: 2005Q4

REPORT INFORMATION
  Report Type: 
  Country: None (occurrence: None)
  Receive Date: 20051222
  Receipt Date: 20050916
  Transmission Date: 20060501
  Serious: Yes (Disabling)
  Sender: FDA-Public Use
  Company Number: PHBS2005JP13821

PATIENT

DRUGS (2)
  1. NEORAL [Suspect]
     Indication: PSORIASIS
     Route: 048
  2. OXAROL [Concomitant]

REACTIONS (2)
  - BRADYCARDIA [None]
  - CARDIAC PACEMAKER INSERTION [None]
